FAERS Safety Report 4352301-3 (Version None)
Quarter: 2004Q2

REPORT INFORMATION
  Report Type: 
  Country: None (occurrence: None)
  Receive Date: 20040504
  Receipt Date: 20040220
  Transmission Date: 20050107
  Serious: Yes (Other)
  Sender: FDA-Public Use
  Company Number: 200410716FR

PATIENT
  Age: 74 Year
  Sex: Female

DRUGS (7)
  1. ARAVA [Suspect]
     Indication: RHEUMATOID ARTHRITIS
     Route: 048
     Dates: start: 20030901, end: 20040323
  2. CORTANCYL [Suspect]
     Indication: RHEUMATOID ARTHRITIS
     Route: 048
     Dates: start: 19980101
  3. ACTONEL [Concomitant]
     Route: 048
     Dates: start: 20020401
  4. CALCIUM WITH VITAMIN D [Concomitant]
     Route: 048
     Dates: start: 20010801
  5. OMEPRAZOLE [Concomitant]
     Route: 048
     Dates: start: 20010801
  6. KALEORID [Concomitant]
     Route: 048
  7. LEVOTHYROXINE SODIUM [Concomitant]
     Indication: HYPOTHYROIDISM
     Route: 048

REACTIONS (3)
  - ANAEMIA [None]
  - FATIGUE [None]
  - KAPOSI'S SARCOMA [None]
